FAERS Safety Report 12288347 (Version 1)
Quarter: 2016Q2

REPORT INFORMATION
  Report Type: Spontaneous
  Country: IE (occurrence: IE)
  Receive Date: 20160420
  Receipt Date: 20160420
  Transmission Date: 20160815
  Serious: Yes (Death, Hospitalization, Other)
  Sender: FDA-Public Use
  Company Number: IE-ASTRAZENECA-2016SE40094

PATIENT
  Age: 79 Year
  Sex: Male

DRUGS (2)
  1. CASODEX [Suspect]
     Active Substance: BICALUTAMIDE
     Indication: PROSTATE CANCER
     Route: 048
     Dates: start: 20150413
  2. ASPIRIN. [Concomitant]
     Active Substance: ASPIRIN

REACTIONS (9)
  - Transient ischaemic attack [Unknown]
  - Road traffic accident [Unknown]
  - Nephrotic syndrome [Fatal]
  - Peripheral swelling [Unknown]
  - Headache [Unknown]
  - Visual impairment [Unknown]
  - Cataract [Unknown]
  - Confusional state [Unknown]
  - Raynaud^s phenomenon [Unknown]

NARRATIVE: CASE EVENT DATE: 201506
